FAERS Safety Report 13256698 (Version 8)
Quarter: 2017Q2

REPORT INFORMATION
  Report Type: Spontaneous
  Country: FR (occurrence: FR)
  Receive Date: 20170221
  Receipt Date: 20170428
  Transmission Date: 20170830
  Serious: Yes (Death, Life-Threatening, Hospitalization, Other)
  Sender: FDA-Public Use
  Company Number: FR-PFIZER INC-2017073818

PATIENT
  Age: 74 Year
  Sex: Female
  Weight: 63 kg

DRUGS (5)
  1. DOCETAXEL HOSPIRA [Suspect]
     Active Substance: DOCETAXEL
     Indication: BREAST CANCER
     Dosage: 100 MG, CYCLIC
     Route: 042
     Dates: start: 20170118, end: 20170215
  2. ENDOXAN /00021101/ [Suspect]
     Active Substance: CYCLOPHOSPHAMIDE
     Indication: BREAST CANCER
     Dosage: 500 MG, CYCLIC
     Route: 042
     Dates: start: 20170118
  3. CALCIPARINE [Suspect]
     Active Substance: HEPARIN CALCIUM
     Dosage: UNK
     Route: 058
     Dates: start: 20170208
  4. HERCEPTIN [Suspect]
     Active Substance: TRASTUZUMAB
     Indication: BREAST CANCER
     Dosage: 370 MG, CYCLIC
     Route: 042
     Dates: start: 20170118
  5. COUMADINE [Concomitant]
     Active Substance: WARFARIN SODIUM
     Dosage: UNK
     Dates: end: 20170208

REACTIONS (15)
  - Cerebral haematoma [Fatal]
  - Thrombocytopenia [Unknown]
  - Abdominal pain [Unknown]
  - Leukopenia [Unknown]
  - Abdominal distension [Unknown]
  - Hepatic enzyme increased [Unknown]
  - Pain [Unknown]
  - Alopecia [Unknown]
  - Pancytopenia [Fatal]
  - Haemoglobin decreased [Unknown]
  - Loss of consciousness [Unknown]
  - Pancreatic atrophy [Unknown]
  - Renal artery arteriosclerosis [Unknown]
  - Systemic lupus erythematosus rash [Unknown]
  - Arthralgia [Unknown]

NARRATIVE: CASE EVENT DATE: 20170122
